FAERS Safety Report 11383010 (Version 5)
Quarter: 2016Q3

REPORT INFORMATION
  Report Type: Spontaneous
  Country: US (occurrence: US)
  Receive Date: 20150814
  Receipt Date: 20160712
  Transmission Date: 20161109
  Serious: No
  Sender: FDA-Public Use
  Company Number: US-PFIZER INC-2015267662

PATIENT
  Age: 60 Year
  Sex: Male
  Weight: 88 kg

DRUGS (13)
  1. LYRICA [Suspect]
     Active Substance: PREGABALIN
     Indication: DIABETIC NEUROPATHY
     Dosage: 75 MG, 2X/DAY (ONE IN THE MORNING AND ONE BEFORE BED)
     Route: 048
     Dates: start: 20150703, end: 20150801
  2. ASPIRIN. [Concomitant]
     Active Substance: ASPIRIN
     Dosage: 325 MG, DAILY
     Route: 048
  3. AMLODIPINE [Concomitant]
     Active Substance: AMLODIPINE BESYLATE
     Indication: BLOOD PRESSURE ABNORMAL
     Dosage: 5 MG, ONE PILL DAILY AT BEDTIME
     Route: 048
  4. LISINOPRIL HYDROCHLOROTHIAZIDE 10/12.5 [Concomitant]
     Indication: BLOOD PRESSURE ABNORMAL
     Dosage: 1 PILL ([HYDROCHLOROTHIAZIDE 12.5 MG]/ [LISINOPRIL 10 MG]), DAILY
     Route: 048
  5. PRAVASTATIN. [Concomitant]
     Active Substance: PRAVASTATIN
     Dosage: UNK
  6. METFORMIN [Concomitant]
     Active Substance: METFORMIN HYDROCHLORIDE
     Indication: DIABETES MELLITUS
     Dosage: 500 MG, ONE PILL AT BEDTIME
     Route: 048
  7. NOVOLIN R [Concomitant]
     Active Substance: INSULIN HUMAN
     Indication: DIABETES MELLITUS
     Dosage: 5 IU, 3X/DAY (BEFORE MEALS), ON A SLIDING SCALE
     Route: 058
  8. LYRICA [Suspect]
     Active Substance: PREGABALIN
     Dosage: 100 MG, 3X/DAY
     Dates: start: 20160324
  9. LYRICA [Suspect]
     Active Substance: PREGABALIN
     Dosage: 50 MG, 2X/DAY
     Route: 048
     Dates: start: 20150820
  10. LEVEMIR [Concomitant]
     Active Substance: INSULIN DETEMIR
     Indication: DIABETES MELLITUS
     Dosage: 20 IU, 1X/DAY, AT BEDTIME
     Route: 058
  11. ATORVASTATIN [Concomitant]
     Active Substance: ATORVASTATIN
     Indication: BLOOD CHOLESTEROL ABNORMAL
     Dosage: 40 MG, ONE PILL AT BEDTIME
     Route: 048
  12. LYRICA [Suspect]
     Active Substance: PREGABALIN
     Dosage: 75 MG, 3X/DAY
  13. METOPROLOL TARTRATE. [Concomitant]
     Active Substance: METOPROLOL TARTRATE
     Indication: HEART RATE DECREASED
     Dosage: 25 MG (ONE PILL), 2X/DAY
     Route: 048

REACTIONS (10)
  - Condition aggravated [Not Recovered/Not Resolved]
  - Insomnia [Unknown]
  - Fatigue [Recovered/Resolved]
  - Diabetic neuropathy [Not Recovered/Not Resolved]
  - Vision blurred [Recovered/Resolved]
  - Activities of daily living impaired [Not Recovered/Not Resolved]
  - Drug ineffective [Not Recovered/Not Resolved]
  - Somnolence [Recovered/Resolved]
  - Nausea [Recovered/Resolved]
  - Thinking abnormal [Unknown]

NARRATIVE: CASE EVENT DATE: 2014
